FAERS Safety Report 5166946-4 (Version None)
Quarter: 2006Q4

REPORT INFORMATION
  Report Type: 
  Country: None (occurrence: None)
  Receive Date: 20061207
  Receipt Date: 20061127
  Transmission Date: 20070319
  Serious: Yes (Hospitalization)
  Sender: FDA-Public Use
  Company Number: US-ELI_LILLY_AND_COMPANY-US200611005194

PATIENT
  Age: 88 Year
  Sex: Female

DRUGS (5)
  1. FORTEO [Suspect]
     Indication: OSTEOPOROSIS
     Dates: start: 20051101
  2. PLAVIX                                  /UNK/ [Concomitant]
     Indication: PERIPHERAL VASCULAR DISORDER
  3. COLACE [Concomitant]
  4. LASIX [Concomitant]
     Indication: SWELLING
  5. COZAAR [Concomitant]

REACTIONS (4)
  - AMNESIA [None]
  - ARTERIAL DISORDER [None]
  - FEELING ABNORMAL [None]
  - PHARMACEUTICAL PRODUCT COMPLAINT [None]
